FAERS Safety Report 24180610 (Version 1)
Quarter: 2024Q3

REPORT INFORMATION
  Report Type: Spontaneous
  Country: US (occurrence: US)
  Receive Date: 20240806
  Receipt Date: 20240806
  Transmission Date: 20241016
  Serious: Yes (Hospitalization, Other)
  Sender: CIPLA
  Company Number: US-CIPLA LTD.-2024US08140

PATIENT

DRUGS (4)
  1. ATORVASTATIN [Interacting]
     Active Substance: ATORVASTATIN
     Indication: Product used for unknown indication
     Dosage: 40 MILLIGRAM, QD (LONG-TERM/HIGH-INTENSITY)
     Route: 065
  2. HERBALS\TRIBULUS TERRESTRIS [Interacting]
     Active Substance: HERBALS\TRIBULUS TERRESTRIS
     Indication: Supplementation therapy
     Dosage: 500 MILLIGRAM, QD
     Route: 065
  3. ASPIRIN [Interacting]
     Active Substance: ASPIRIN
     Indication: Product used for unknown indication
     Dosage: 81 MILLIGRAM, QD
     Route: 065
  4. METOPROLOL SUCCINATE [Interacting]
     Active Substance: METOPROLOL SUCCINATE
     Indication: Product used for unknown indication
     Dosage: 100 MILLIGRAM, QD
     Route: 065

REACTIONS (3)
  - Drug interaction [Recovered/Resolved]
  - Herbal interaction [Recovered/Resolved]
  - Rhabdomyolysis [Recovered/Resolved]
